FAERS Safety Report 5755150-4 (Version None)
Quarter: 2008Q2

REPORT INFORMATION
  Report Type: 
  Country: None (occurrence: None)
  Receive Date: 20080528
  Receipt Date: 20080528
  Transmission Date: 20081010
  Serious: Yes (Other)
  Sender: FDA-Public Use
  Company Number: None

PATIENT
  Age: 26 Year
  Sex: Male
  Weight: 112 kg

DRUGS (1)
  1. DIGOXIN [Suspect]
     Indication: HEART RATE INCREASED
     Dosage: 1 PILL SAT SUN TUE THURS PO
     Route: 048
     Dates: start: 20070505, end: 20080527

REACTIONS (1)
  - HYPOTENSION [None]
